FAERS Safety Report 18832249 (Version 2)
Quarter: 2021Q1

REPORT INFORMATION
  Report Type: Spontaneous
  Country: US (occurrence: US)
  Receive Date: 20210201
  Receipt Date: 20210319
  Transmission Date: 20210419
  Serious: Yes (Other)
  Sender: FDA-Public Use
  Company Number: US-ABBVIE-21K-163-3753303-00

PATIENT
  Age: 28 Year
  Sex: Female

DRUGS (3)
  1. TIROSINT [Concomitant]
     Active Substance: LEVOTHYROXINE SODIUM
     Indication: THYROIDECTOMY
  2. PLAQUENIL [Concomitant]
     Active Substance: HYDROXYCHLOROQUINE SULFATE
     Indication: RHEUMATOID ARTHRITIS
  3. HUMIRA [Suspect]
     Active Substance: ADALIMUMAB
     Indication: RHEUMATOID ARTHRITIS
     Route: 058
     Dates: start: 201903, end: 202004

REACTIONS (9)
  - Thyroid cancer [Recovered/Resolved]
  - Fatigue [Recovered/Resolved]
  - Breast pain [Recovered/Resolved]
  - Mass [Recovered/Resolved]
  - Adenoma benign [Recovering/Resolving]
  - Breast cyst [Recovering/Resolving]
  - Anxiety [Recovered/Resolved]
  - Blood calcium decreased [Recovered/Resolved]
  - Thyroid mass [Recovered/Resolved]

NARRATIVE: CASE EVENT DATE: 2019
